FAERS Safety Report 25445475 (Version 1)
Quarter: 2025Q2

REPORT INFORMATION
  Report Type: Spontaneous
  Country: US (occurrence: None)
  Receive Date: 20250616
  Receipt Date: 20250616
  Transmission Date: 20250717
  Serious: Yes (Hospitalization)
  Sender: FDA-CTU
  Company Number: None

PATIENT
  Age: 60 Year
  Sex: Female
  Weight: 57.8 kg

DRUGS (1)
  1. TACROLIMUS [Suspect]
     Active Substance: TACROLIMUS
     Indication: Renal transplant
     Route: 048
     Dates: start: 20220501, end: 20250315

REACTIONS (9)
  - Encephalitis viral [None]
  - Amnesia [None]
  - Toothache [None]
  - Candida infection [None]
  - Hypophagia [None]
  - Herpes zoster [None]
  - Gait disturbance [None]
  - Fall [None]
  - Head injury [None]

NARRATIVE: CASE EVENT DATE: 20250225
